FAERS Safety Report 6571471-X (Version None)
Quarter: 2010Q1

REPORT INFORMATION
  Report Type: 
  Country: None (occurrence: None)
  Receive Date: 20100205
  Receipt Date: 20100125
  Transmission Date: 20100710
  Serious: Yes (Other)
  Sender: FDA-Public Use
  Company Number: US-JNJFOC-20090905137

PATIENT
  Sex: Female
  Weight: 72.2 kg

DRUGS (23)
  1. GOLIMUMAB [Suspect]
     Indication: RHEUMATOID ARTHRITIS
     Route: 058
     Dates: start: 20060822, end: 20071016
  2. GOLIMUMAB [Suspect]
     Route: 058
     Dates: start: 20060822, end: 20071016
  3. GOLIMUMAB [Suspect]
     Route: 058
     Dates: start: 20060822, end: 20071016
  4. GOLIMUMAB [Suspect]
     Route: 058
     Dates: start: 20060822, end: 20071016
  5. GOLIMUMAB [Suspect]
     Route: 058
     Dates: start: 20060822, end: 20071016
  6. GOLIMUMAB [Suspect]
     Route: 058
     Dates: start: 20060822, end: 20071016
  7. GOLIMUMAB [Suspect]
     Route: 058
     Dates: start: 20060822, end: 20071016
  8. GOLIMUMAB [Suspect]
     Route: 058
     Dates: start: 20060822, end: 20071016
  9. GOLIMUMAB [Suspect]
     Route: 058
     Dates: start: 20060822, end: 20071016
  10. GOLIMUMAB [Suspect]
     Route: 058
     Dates: start: 20060822, end: 20071016
  11. GOLIMUMAB [Suspect]
     Route: 058
     Dates: start: 20060822, end: 20071016
  12. GOLIMUMAB [Suspect]
     Route: 058
     Dates: start: 20060822, end: 20071016
  13. GOLIMUMAB [Suspect]
     Route: 058
     Dates: start: 20060822, end: 20071016
  14. GOLIMUMAB [Suspect]
     Route: 058
     Dates: start: 20060822, end: 20071016
  15. GOLIMUMAB [Suspect]
     Route: 058
     Dates: start: 20060822, end: 20071016
  16. GOLIMUMAB [Suspect]
     Route: 058
     Dates: start: 20060822, end: 20071016
  17. PLACEBO [Suspect]
     Indication: RHEUMATOID ARTHRITIS
     Route: 048
     Dates: start: 20060822
  18. PLACEBO [Suspect]
     Route: 048
     Dates: start: 20060822
  19. PLACEBO [Suspect]
     Route: 048
     Dates: start: 20060822
  20. PLACEBO [Suspect]
     Route: 048
     Dates: start: 20060822
  21. PLACEBO [Suspect]
     Route: 048
     Dates: start: 20060822
  22. METHOTREXATE [Concomitant]
     Indication: RHEUMATOID ARTHRITIS
     Route: 048
     Dates: start: 20080722
  23. PREDNISONE [Concomitant]
     Route: 048
     Dates: start: 20060506

REACTIONS (1)
  - BREAST CANCER [None]
